FAERS Safety Report 9733615 (Version 2)
Quarter: 2013Q4

REPORT INFORMATION
  Report Type: Spontaneous
  Country: US (occurrence: US)
  Receive Date: 20131205
  Receipt Date: 20131216
  Transmission Date: 20140711
  Serious: Yes (Other)
  Sender: FDA-Public Use
  Company Number: CHPA2013US017911

PATIENT
  Age: 68 Year
  Sex: Female

DRUGS (2)
  1. EXCEDRIN EXTRA STRENGTH [Suspect]
     Indication: SINUS HEADACHE
     Dosage: 1 DF, PRN
     Route: 048
  2. BAYER ASPIRIN [Concomitant]
     Indication: BACK PAIN

REACTIONS (3)
  - Hypertension [Not Recovered/Not Resolved]
  - Nasopharyngitis [Recovering/Resolving]
  - Incorrect dose administered [Unknown]
